FAERS Safety Report 4778333-9 (Version None)
Quarter: 2005Q3

REPORT INFORMATION
  Report Type: 
  Country: None (occurrence: None)
  Receive Date: 20050923
  Receipt Date: 20050923
  Transmission Date: 20060218
  Serious: Yes (Hospitalization)
  Sender: FDA-Public Use
  Company Number: None

PATIENT
  Sex: Male
  Weight: 80 kg

DRUGS (11)
  1. WARFARIN SODIUM [Suspect]
     Indication: AORTIC VALVE REPLACEMENT
     Dosage: 2.5MG DAILY EXCEPT 3 MG ON TUE PO
     Route: 048
     Dates: start: 20000701, end: 20050923
  2. GATIFLOXACIN [Suspect]
     Indication: INFECTION
     Dosage: 400MG DAILY PO
     Route: 048
     Dates: start: 20050727, end: 20050804
  3. CARBAMIDE PEROXIDE [Concomitant]
  4. .. [Concomitant]
  5. BETAMETHASONE DIPROPIONATE [Concomitant]
  6. CALCIPOTRIENE [Concomitant]
  7. GEMFIBROZIL [Concomitant]
  8. HYDROCHLOROTHIAZIDE [Concomitant]
  9. IPRATROPIUM BROMIDE [Concomitant]
  10. LISINOPRIL [Concomitant]
  11. METOPROLOL TARTRATE [Concomitant]

REACTIONS (4)
  - HAEMATOCRIT DECREASED [None]
  - HAEMOGLOBIN DECREASED [None]
  - INTERNATIONAL NORMALISED RATIO INCREASED [None]
  - MELAENA [None]
